FAERS Safety Report 6574181-8 (Version None)
Quarter: 2010Q1

REPORT INFORMATION
  Report Type: 
  Country: None (occurrence: None)
  Receive Date: 20100208
  Receipt Date: 20091221
  Transmission Date: 20100710
  Serious: No
  Sender: FDA-Public Use
  Company Number: US-BAYER-200941006NA

PATIENT
  Age: 41 Year
  Sex: Female

DRUGS (2)
  1. ULTRAVIST 300 [Suspect]
     Indication: COMPUTERISED TOMOGRAM
     Dosage: TOTAL DAILY DOSE: 150 ML  UNIT DOSE: 150 ML
     Route: 042
     Dates: start: 20091001, end: 20091001
  2. READI-CAT [Concomitant]
     Dosage: AS USED: 900 ML

REACTIONS (1)
  - URTICARIA [None]
